FAERS Safety Report 9127491 (Version 1)
Quarter: 2013Q1

REPORT INFORMATION
  Report Type: Spontaneous
  Country: US (occurrence: US)
  Receive Date: 20130228
  Receipt Date: 20130228
  Transmission Date: 20140127
  Serious: No
  Sender: FDA-Public Use
  Company Number: US-GLAXOSMITHKLINE-A0979671A

PATIENT
  Age: 34 Year
  Sex: Female

DRUGS (8)
  1. LAMICTAL [Suspect]
     Indication: DEPRESSION
     Dosage: 25MG PER DAY
     Route: 048
     Dates: start: 20120517
  2. FLEXERIL [Concomitant]
  3. CYMBALTA [Concomitant]
  4. ADDERALL XR [Concomitant]
  5. NEXIUM [Concomitant]
  6. XANAX [Concomitant]
  7. BENADRYL [Concomitant]
  8. TYLENOL [Concomitant]

REACTIONS (1)
  - Back pain [Not Recovered/Not Resolved]
